FAERS Safety Report 6369839-X (Version None)
Quarter: 2009Q3

REPORT INFORMATION
  Report Type: 
  Country: None (occurrence: None)
  Receive Date: 20090923
  Receipt Date: 20070423
  Transmission Date: 20100115
  Serious: Yes (Other)
  Sender: FDA-Public Use
  Company Number: US-ASTRAZENECA-2006UW11032

PATIENT
  Age: 16650 Day
  Sex: Male
  Weight: 131.1 kg

DRUGS (23)
  1. SEROQUEL [Suspect]
     Indication: WEIGHT DECREASED
     Dosage: 200 - 300 MG
     Route: 048
     Dates: start: 20010316
  2. SEROQUEL [Suspect]
     Dosage: 100 MG
     Route: 048
     Dates: start: 20020101, end: 20060401
  3. ZYPREXA [Suspect]
  4. HALDOL [Concomitant]
  5. RISPERDAL [Concomitant]
  6. RISPERDAL [Concomitant]
  7. NAPROXEN [Concomitant]
     Route: 048
  8. DIAZEPAM [Concomitant]
     Route: 048
  9. DIABETA [Concomitant]
     Dosage: TWICE A DAY
  10. NORVASC [Concomitant]
     Dosage: 5 - 10 MG DAILY
  11. ATUSS DM [Concomitant]
     Route: 048
  12. ENALAPRIL MALEATE [Concomitant]
  13. TOPAMAX [Concomitant]
     Dosage: 25  - 100 MG
     Route: 048
  14. DEPAKOTE [Concomitant]
  15. PREDNISOLONE AC [Concomitant]
  16. XALATAN [Concomitant]
  17. CARISOPRODOL [Concomitant]
  18. IBUPROFEN [Concomitant]
     Dosage: 600 - 800 MG
  19. SKELAXIN [Concomitant]
  20. ZYRTEC [Concomitant]
  21. ALPHAGAN [Concomitant]
  22. INDOMETHACIN [Concomitant]
  23. COSOPT [Concomitant]

REACTIONS (3)
  - HYPOGLYCAEMIA [None]
  - PANCREATITIS [None]
  - TYPE 2 DIABETES MELLITUS [None]
